FAERS Safety Report 6558706-4 (Version None)
Quarter: 2010Q1

REPORT INFORMATION
  Report Type: 
  Country: None (occurrence: None)
  Receive Date: 20100129
  Receipt Date: 20100118
  Transmission Date: 20100710
  Serious: Yes (Hospitalization)
  Sender: FDA-Public Use
  Company Number: FR-PFIZER INC-2009254143

PATIENT
  Age: 72 Year
  Sex: Male

DRUGS (3)
  1. ZOLOFT [Suspect]
     Dosage: 50 MG, 1X/DAY
     Route: 048
  2. OGASTRO [Suspect]
     Dosage: 30 MG, 1X/DAY
     Route: 048
     Dates: start: 20090225, end: 20090715
  3. DEPAMIDE [Suspect]
     Dosage: 300 MG, 3X/DAY
     Route: 048

REACTIONS (2)
  - COLITIS COLLAGENOUS [None]
  - COLITIS MICROSCOPIC [None]
